FAERS Safety Report 11366172 (Version 2)
Quarter: 2015Q4

REPORT INFORMATION
  Report Type: Spontaneous
  Country: US (occurrence: US)
  Receive Date: 20150811
  Receipt Date: 20151104
  Transmission Date: 20160304
  Serious: Yes (Other)
  Sender: FDA-Public Use
  Company Number: US-OTSUKA-2015_006302

PATIENT

DRUGS (17)
  1. CIPRO [Concomitant]
     Active Substance: CIPROFLOXACIN HYDROCHLORIDE
     Indication: PRODUCT USED FOR UNKNOWN INDICATION
     Dosage: 500 MG, 1 BID
     Route: 048
  2. ACYCLOVIR. [Concomitant]
     Active Substance: ACYCLOVIR
     Indication: PRODUCT USED FOR UNKNOWN INDICATION
     Dosage: 400 MG, 1 BID
     Route: 048
  3. SERTRALINE HCL [Concomitant]
     Active Substance: SERTRALINE HYDROCHLORIDE
     Indication: PRODUCT USED FOR UNKNOWN INDICATION
     Dosage: 100 MG, 1.5 PO DAILY
     Route: 048
  4. DACOGEN [Suspect]
     Active Substance: DECITABINE
     Indication: ACUTE MYELOID LEUKAEMIA
     Dosage: 38 MG(20 MG/M2)OVER 1 HOUR,DILUTE IN NS TO FINAL CONCENTRATION OF 0.1-1 MG/ML.
     Route: 042
     Dates: start: 20150615
  5. DACOGEN [Suspect]
     Active Substance: DECITABINE
     Dosage: 38 MG(20 MG/M2)OVER 1 HOUR,DILUTE IN NS TO FINAL CONCENTRATION OF 0.1-1 MG/ML
     Route: 042
     Dates: start: 20150616
  6. DACOGEN [Suspect]
     Active Substance: DECITABINE
     Dosage: 38 MG(20 MG/M2)OVER 1 HOUR,DILUTE IN NS TO FINAL CONCENTRATION OF 0.1-1 MG/ML
     Route: 042
     Dates: start: 20150617
  7. OXYCODONE HYDROCHLORIDE. [Concomitant]
     Active Substance: OXYCODONE HYDROCHLORIDE
     Indication: PAIN
     Dosage: 10MG-325MG,Q6H
     Route: 048
  8. PREDNISONE. [Concomitant]
     Active Substance: PREDNISONE
     Indication: PRODUCT USED FOR UNKNOWN INDICATION
     Dosage: 5 MG, UNK
     Route: 048
  9. DACOGEN [Suspect]
     Active Substance: DECITABINE
     Dosage: 38 MG(20 MG/M2)OVER 1 HOUR,DILUTE IN NS TO FINAL CONCENTRATION OF 0.1-1 MG/ML
     Route: 042
     Dates: start: 20150618
  10. DACOGEN [Suspect]
     Active Substance: DECITABINE
     Dosage: 38 MG(20 MG/M2)OVER 1 HOUR,DILUTE IN NS TO FINAL CONCENTRATION OF 0.1-1 MG/ML
     Dates: start: 20150619
  11. SYNTHROID [Concomitant]
     Active Substance: LEVOTHYROXINE SODIUM
     Indication: PRODUCT USED FOR UNKNOWN INDICATION
     Dosage: 100 MCG, QD
     Route: 048
  12. PROVENTIL [Concomitant]
     Active Substance: ALBUTEROL
     Indication: PRODUCT USED FOR UNKNOWN INDICATION
     Dosage: 90 MCG HFA AEROSOL WITH ADAPTER(GM),2 INHALATIONS
     Route: 065
  13. ZOFRAN [Concomitant]
     Active Substance: ONDANSETRON HYDROCHLORIDE
     Indication: PRODUCT USED FOR UNKNOWN INDICATION
     Dosage: 8 MG, 1 BID
     Route: 048
  14. MIRAPEX [Concomitant]
     Active Substance: PRAMIPEXOLE DIHYDROCHLORIDE
     Indication: PRODUCT USED FOR UNKNOWN INDICATION
     Dosage: 0.5 MG, QD
     Route: 048
  15. AMBIEN [Concomitant]
     Active Substance: ZOLPIDEM TARTRATE
     Indication: SLEEP DISORDER
     Dosage: 5 MG,1 QHS
     Route: 048
  16. DIFLUCAN [Concomitant]
     Active Substance: FLUCONAZOLE
     Indication: PRODUCT USED FOR UNKNOWN INDICATION
     Dosage: 200 MG, QD
     Route: 048
  17. HYDROXYZINE [Concomitant]
     Active Substance: HYDROXYZINE\HYDROXYZINE HYDROCHLORIDE
     Indication: PRODUCT USED FOR UNKNOWN INDICATION
     Dosage: 25 MG, 1 PO QID
     Route: 048

REACTIONS (2)
  - Fatigue [Unknown]
  - Cytopenia [Unknown]
